FAERS Safety Report 14570390 (Version 5)
Quarter: 2020Q1

REPORT INFORMATION
  Report Type: Spontaneous
  Country: US (occurrence: US)
  Receive Date: 20180226
  Receipt Date: 20200210
  Transmission Date: 20200409
  Serious: Yes (Hospitalization, Other)
  Sender: FDA-Public Use
  Company Number: US-TAKEDA-2018TUS004644

PATIENT
  Age: 59 Year
  Sex: Female
  Weight: 85.26 kg

DRUGS (11)
  1. HCTZ [Concomitant]
     Active Substance: HYDROCHLOROTHIAZIDE
     Dosage: UNK
  2. DEXILANT [Concomitant]
     Active Substance: DEXLANSOPRAZOLE
     Indication: DYSPEPSIA
     Dosage: UNK
  3. TRINTELLIX [Suspect]
     Active Substance: VORTIOXETINE HYDROBROMIDE
     Indication: MAJOR DEPRESSION
     Dosage: 10 MILLIGRAM, QD
     Route: 048
     Dates: start: 20171019
  4. DULOXETINE. [Concomitant]
     Active Substance: DULOXETINE
     Indication: DEPRESSION
     Dosage: 30 MG, BID
     Route: 065
     Dates: start: 2014
  5. TRINTELLIX [Suspect]
     Active Substance: VORTIOXETINE HYDROBROMIDE
     Dosage: 20 MILLIGRAM, QD
     Route: 048
     Dates: start: 20171115, end: 20171116
  6. TRAMADOL. [Concomitant]
     Active Substance: TRAMADOL
     Indication: PAIN
     Dosage: 50 MG, UNK
     Route: 048
     Dates: start: 2014
  7. SONATA [Concomitant]
     Active Substance: ZALEPLON
     Dosage: 10 MG, QD
     Route: 048
  8. TRINTELLIX [Suspect]
     Active Substance: VORTIOXETINE HYDROBROMIDE
     Dosage: UNK
     Route: 065
     Dates: start: 2017
  9. LORAZEPAM. [Concomitant]
     Active Substance: LORAZEPAM
     Indication: ANXIETY
     Dosage: 1 MG, QD
     Dates: start: 2014
  10. OLANZAPINE. [Concomitant]
     Active Substance: OLANZAPINE
     Indication: MOOD SWINGS
     Dosage: 5 MG, UNK
     Route: 048
     Dates: start: 2014
  11. XANAX [Concomitant]
     Active Substance: ALPRAZOLAM
     Indication: ANXIETY
     Dosage: 1 MG, TID
     Route: 048
     Dates: start: 2014

REACTIONS (15)
  - Bipolar disorder [Unknown]
  - Pyromania [Recovered/Resolved]
  - Hallucination, auditory [Recovered/Resolved]
  - Anger [Not Recovered/Not Resolved]
  - Agitation [Unknown]
  - Suicidal ideation [Unknown]
  - Loss of consciousness [Unknown]
  - Confusional state [Unknown]
  - Psychomotor hyperactivity [Unknown]
  - Depression [Not Recovered/Not Resolved]
  - Toxicity to various agents [Unknown]
  - Hypoaesthesia [Unknown]
  - Homicidal ideation [Unknown]
  - Mania [Not Recovered/Not Resolved]
  - Memory impairment [Unknown]

NARRATIVE: CASE EVENT DATE: 2017
